FAERS Safety Report 4893404-4 (Version None)
Quarter: 2006Q1

REPORT INFORMATION
  Report Type: 
  Country: None (occurrence: None)
  Receive Date: 20060125
  Receipt Date: 20060125
  Transmission Date: 20060701
  Serious: Yes (Death)
  Sender: FDA-Public Use
  Company Number: None

PATIENT
  Age: 14 Month
  Sex: Female
  Weight: 6.9 kg

DRUGS (4)
  1. IRINOTECAN HCL [Suspect]
     Indication: CENTRAL NERVOUS SYSTEM NEOPLASM
     Dosage: SEE IMAGE
     Dates: start: 20060102, end: 20060106
  2. TEMOZOLOMIDE [Suspect]
     Dosage: SEE IMAGE
     Route: 048
     Dates: start: 20060102, end: 20060106
  3. VINCRISTINE [Suspect]
     Dosage: SEE IMAGE
     Route: 040
     Dates: start: 20060102, end: 20060102
  4. CEFIXIME CHEWABLE [Suspect]
     Dosage: SEE IMAGE

REACTIONS (11)
  - ABNORMAL BEHAVIOUR [None]
  - CENTRAL NERVOUS SYSTEM NEOPLASM [None]
  - COMPUTERISED TOMOGRAM ABNORMAL [None]
  - CONVULSION [None]
  - DISEASE RECURRENCE [None]
  - FATIGUE [None]
  - HEADACHE [None]
  - MALIGNANT NEOPLASM PROGRESSION [None]
  - NODULE [None]
  - OBSTRUCTION [None]
  - STARING [None]
